FAERS Safety Report 4667234-2 (Version None)
Quarter: 2005Q2

REPORT INFORMATION
  Report Type: 
  Country: None (occurrence: None)
  Receive Date: 20050520
  Receipt Date: 20050207
  Transmission Date: 20051028
  Serious: No
  Sender: FDA-Public Use
  Company Number: US-BRISTOL-MYERS SQUIBB COMPANY-12850970

PATIENT
  Age: 60 Year
  Sex: Male
  Weight: 63 kg

DRUGS (4)
  1. SINEMET [Suspect]
     Indication: PARKINSON'S DISEASE
     Dosage: STARTED APPROX 8 YRS AGO (8AM,2PM,8PM,2AM); INTERRUPTED 24-DEC-2004. RESTARTED 07 OR 08-JAN-2005.
     Route: 048
  2. LANOXIN [Concomitant]
  3. NEURONTIN [Concomitant]
     Dosage: TAKEN FOR APPROXIMATELY 1 TO 2 YEARS
     Dates: end: 20041224
  4. FLEXERIL [Concomitant]
     Dosage: TAKEN FOR APPROXIMATELY 1 TO 2 YEARS
     Dates: end: 20041224

REACTIONS (5)
  - DEPRESSED LEVEL OF CONSCIOUSNESS [None]
  - MUSCLE RIGIDITY [None]
  - MUSCULOSKELETAL STIFFNESS [None]
  - PAIN IN EXTREMITY [None]
  - SOMNOLENCE [None]
